FAERS Safety Report 14078619 (Version 1)
Quarter: 2017Q4

REPORT INFORMATION
  Report Type: Spontaneous
  Country: US (occurrence: US)
  Receive Date: 20171012
  Receipt Date: 20171012
  Transmission Date: 20180321
  Serious: Yes (Life-Threatening, Hospitalization, Disabling, Other)
  Sender: FDA-Public Use
  Company Number: None

PATIENT
  Age: 64 Year
  Sex: Female
  Weight: 72 kg

DRUGS (11)
  1. SPIRULLINA [Concomitant]
  2. CHLORELLA VULGARIS [Concomitant]
     Active Substance: CHLORELLA VULGARIS
  3. CALCIUM [Concomitant]
     Active Substance: CALCIUM
  4. PRIMROSE OIL [Concomitant]
  5. FLAXSEED [Concomitant]
     Active Substance: FLAX SEED
  6. BILBERRY EXTRACT [Concomitant]
  7. OPTIMARK [Suspect]
     Active Substance: GADOVERSETAMIDE
     Indication: NUCLEAR MAGNETIC RESONANCE IMAGING
     Dosage: ?          OTHER FREQUENCY:ONE DOSE;?
     Route: 042
     Dates: start: 20121112, end: 20121112
  8. RESTASIS [Concomitant]
     Active Substance: CYCLOSPORINE
  9. TUMERIC [Concomitant]
     Active Substance: HERBALS\TURMERIC
  10. CINNAMON. [Concomitant]
     Active Substance: CINNAMON
  11. GARLIC. [Concomitant]
     Active Substance: GARLIC

REACTIONS (3)
  - Paraesthesia [None]
  - Restlessness [None]
  - Anxiety [None]

NARRATIVE: CASE EVENT DATE: 20121112
